FAERS Safety Report 18380475 (Version 1)
Quarter: 2020Q4

REPORT INFORMATION
  Report Type: Spontaneous
  Country: CA (occurrence: CA)
  Receive Date: 20201013
  Receipt Date: 20201013
  Transmission Date: 20210114
  Serious: Yes (Other)
  Sender: FDA-Public Use
  Company Number: CA-ROCHE-2693757

PATIENT
  Sex: Female

DRUGS (14)
  1. ACTEMRA [Suspect]
     Active Substance: TOCILIZUMAB
     Route: 065
     Dates: start: 20180111, end: 20190925
  2. PREDNISONE. [Concomitant]
     Active Substance: PREDNISONE
     Dosage: ONGOING
  3. CALCIUM [Concomitant]
     Active Substance: CALCIUM
  4. ORENCIA [Concomitant]
     Active Substance: ABATACEPT
     Dates: start: 20140417, end: 20150918
  5. METHOTREXATE SODIUM. [Suspect]
     Active Substance: METHOTREXATE SODIUM
     Route: 065
     Dates: start: 20180407, end: 20190928
  6. ACTEMRA [Suspect]
     Active Substance: TOCILIZUMAB
     Route: 065
     Dates: start: 20170515, end: 20170906
  7. METHOTREXATE SODIUM. [Suspect]
     Active Substance: METHOTREXATE SODIUM
     Indication: PRODUCT USED FOR UNKNOWN INDICATION
     Route: 065
     Dates: start: 20090101, end: 20110101
  8. METHOTREXATE SODIUM. [Suspect]
     Active Substance: METHOTREXATE SODIUM
     Route: 065
     Dates: start: 20120205, end: 20131020
  9. ACTEMRA [Suspect]
     Active Substance: TOCILIZUMAB
     Indication: PRODUCT USED FOR UNKNOWN INDICATION
     Route: 065
     Dates: start: 20150107, end: 20161209
  10. PLAQUENIL [Concomitant]
     Active Substance: HYDROXYCHLOROQUINE SULFATE
     Dosage: ONGOING; DIE
  11. CORTISONE [Concomitant]
     Active Substance: CORTISONE
     Route: 030
  12. TYLENOL [Concomitant]
     Active Substance: ACETAMINOPHEN
  13. HYDROXYCHLOROQUINE [Concomitant]
     Active Substance: HYDROXYCHLOROQUINE
     Dates: start: 20100101
  14. SIMPONI [Concomitant]
     Active Substance: GOLIMUMAB
     Dates: start: 20120215, end: 201402

REACTIONS (6)
  - Dizziness [Unknown]
  - Leukopenia [Unknown]
  - Drug intolerance [Unknown]
  - Sarcoidosis [Unknown]
  - Asthma [Unknown]
  - Headache [Unknown]
